FAERS Safety Report 12829118 (Version 1)
Quarter: 2016Q4

REPORT INFORMATION
  Report Type: Spontaneous
  Country: US (occurrence: US)
  Receive Date: 20161007
  Receipt Date: 20161007
  Transmission Date: 20170207
  Serious: No
  Sender: FDA-Public Use
  Company Number: US-SA-2015SA221988

PATIENT
  Age: 64 Year
  Sex: Female

DRUGS (17)
  1. AMPYRA [Concomitant]
     Active Substance: DALFAMPRIDINE
     Dates: start: 201601
  2. AUBAGIO [Suspect]
     Active Substance: TERIFLUNOMIDE
     Indication: MULTIPLE SCLEROSIS
     Route: 048
  3. VITAMIN B12 [Concomitant]
     Active Substance: CYANOCOBALAMIN
  4. ZOCOR [Concomitant]
     Active Substance: SIMVASTATIN
  5. METAMUCIL [Concomitant]
     Active Substance: PLANTAGO SEED
  6. LYSINE [Concomitant]
     Active Substance: LYSINE
  7. ASPIRIN. [Concomitant]
     Active Substance: ASPIRIN
     Dosage: 81
  8. BACLOFEN. [Concomitant]
     Active Substance: BACLOFEN
  9. PROTONIX [Concomitant]
     Active Substance: PANTOPRAZOLE SODIUM
  10. GABAPENTIN. [Concomitant]
     Active Substance: GABAPENTIN
  11. BIOTIN [Concomitant]
     Active Substance: BIOTIN
  12. VITAMIN D [Concomitant]
     Active Substance: CHOLECALCIFEROL
  13. VITAMIN C [Concomitant]
     Active Substance: ASCORBIC ACID
  14. AMPYRA [Concomitant]
     Active Substance: DALFAMPRIDINE
  15. METFORMIN HYDROCHLORIDE. [Concomitant]
     Active Substance: METFORMIN HYDROCHLORIDE
  16. PROVIGIL [Concomitant]
     Active Substance: MODAFINIL
  17. TIZANIDINE HYDROCHLORIDE. [Concomitant]
     Active Substance: TIZANIDINE HYDROCHLORIDE

REACTIONS (6)
  - Insomnia [Unknown]
  - Pruritus [Unknown]
  - Liver function test increased [Unknown]
  - Fatigue [Unknown]
  - Diarrhoea [Unknown]
  - Headache [Unknown]
